FAERS Safety Report 12300264 (Version 1)
Quarter: 2016Q2

REPORT INFORMATION
  Report Type: Spontaneous
  Country: IT (occurrence: IT)
  Receive Date: 20160425
  Receipt Date: 20160425
  Transmission Date: 20160815
  Serious: Yes (Other)
  Sender: FDA-Public Use
  Company Number: IT-SA-2016SA078964

PATIENT
  Age: 42 Year
  Sex: Male
  Weight: 55 kg

DRUGS (8)
  1. VIREAD [Concomitant]
     Active Substance: TENOFOVIR DISOPROXIL FUMARATE
     Indication: ANTIRETROVIRAL THERAPY
     Route: 048
     Dates: start: 20060403, end: 20070216
  2. NICOZID [Suspect]
     Active Substance: ISONIAZID
     Indication: PULMONARY TUBERCULOSIS
     Dosage: STRENGHT:200 MG TABLET
     Route: 048
     Dates: start: 20060318, end: 20061110
  3. PIRALDINA [Suspect]
     Active Substance: PYRAZINAMIDE
     Indication: PULMONARY TUBERCULOSIS
     Dosage: STRENGHT:500 MG TABLET
     Route: 048
     Dates: start: 20060318, end: 20060420
  4. EMTRIVA [Concomitant]
     Active Substance: EMTRICITABINE
     Indication: ANTIRETROVIRAL THERAPY
     Dosage: 200 MG
     Route: 048
     Dates: start: 20060403, end: 20070216
  5. SUSTIVA [Concomitant]
     Active Substance: EFAVIRENZ
     Indication: ANTIRETROVIRAL THERAPY
     Dosage: 600 MG
     Route: 048
     Dates: start: 20060403, end: 20071127
  6. RIFADIN [Suspect]
     Active Substance: RIFAMPIN
     Indication: PULMONARY TUBERCULOSIS
     Route: 048
     Dates: start: 20060318, end: 20061110
  7. ETAPIAM [Suspect]
     Active Substance: ETHAMBUTOL HYDROCHLORIDE
     Indication: PULMONARY TUBERCULOSIS
     Dosage: STRENGHT:400 MG COATED TABLET
     Route: 048
     Dates: start: 20060318, end: 20060807
  8. BACTRIM [Concomitant]
     Active Substance: SULFAMETHOXAZOLE\TRIMETHOPRIM
     Dosage: 160 MG+800 MG
     Route: 048
     Dates: start: 20060318, end: 20071127

REACTIONS (2)
  - Arthralgia [Recovering/Resolving]
  - Musculoskeletal pain [Recovering/Resolving]

NARRATIVE: CASE EVENT DATE: 20060420
